FAERS Safety Report 19712920 (Version 1)
Quarter: 2021Q3

REPORT INFORMATION
  Report Type: Report from Study
  Country: MX (occurrence: MX)
  Receive Date: 20210817
  Receipt Date: 20210817
  Transmission Date: 20211014
  Serious: Yes (Hospitalization)
  Sender: FDA-Public Use
  Company Number: NVSC2021MX164480

PATIENT
  Age: 37 Year
  Sex: Female
  Weight: 70 kg

DRUGS (1)
  1. TASIGNA [Suspect]
     Active Substance: NILOTINIB
     Indication: CHRONIC MYELOID LEUKAEMIA
     Dosage: 400 MG, Q12H
     Route: 048

REACTIONS (3)
  - Appendicitis [Recovered/Resolved]
  - Aphthous ulcer [Recovered/Resolved]
  - Vaginal ulceration [Recovered/Resolved]

NARRATIVE: CASE EVENT DATE: 20210628
